FAERS Safety Report 5947359-1 (Version None)
Quarter: 2008Q4

REPORT INFORMATION
  Report Type: 
  Country: None (occurrence: None)
  Receive Date: 20081110
  Receipt Date: 20081029
  Transmission Date: 20090506
  Serious: Yes (Other)
  Sender: FDA-Public Use
  Company Number: EG-PFIZER INC-2008091431

PATIENT
  Sex: Male

DRUGS (1)
  1. SULPERAZON [Suspect]
     Indication: PROPHYLAXIS
     Route: 042
     Dates: start: 20081015, end: 20081017

REACTIONS (2)
  - DRUG INEFFECTIVE [None]
  - PROCEDURAL SITE REACTION [None]
